FAERS Safety Report 7887975-3 (Version None)
Quarter: 2011Q4

REPORT INFORMATION
  Report Type: 
  Country: None (occurrence: None)
  Receive Date: 20111103
  Receipt Date: 20111026
  Transmission Date: 20120403
  Serious: Yes (Other)
  Sender: FDA-Public Use
  Company Number: BR-ASTELLAS-2011US007108

PATIENT
  Sex: Male
  Weight: 81 kg

DRUGS (13)
  1. PREDNISONE [Suspect]
     Dosage: 10 MG, UID/QD
     Route: 048
     Dates: start: 20100423, end: 20100520
  2. MYCOPHENOLATE SODIUM [Suspect]
     Dosage: 1080 MG, UID/QD
     Route: 048
     Dates: start: 20100306, end: 20100312
  3. MYCOPHENOLATE SODIUM [Suspect]
     Dosage: 360 MG, UNKNOWN/D
     Route: 048
     Dates: start: 20100409, end: 20100421
  4. PREDNISONE [Suspect]
     Dosage: 7.5 MG, UID/QD
     Route: 048
     Dates: start: 20100521
  5. MYCOPHENOLATE SODIUM [Suspect]
     Dosage: 1080 MG, UID/QD
     Route: 048
     Dates: start: 20100422, end: 20110927
  6. TACROLIMUS [Suspect]
     Indication: RENAL TRANSPLANT
     Dosage: 5 MG, BID
     Route: 048
     Dates: start: 20091228, end: 20111010
  7. PREDNISONE [Suspect]
     Indication: RENAL TRANSPLANT
     Dosage: 20 MG, UID/QD
     Route: 048
     Dates: start: 20100123, end: 20100225
  8. PREDNISONE [Suspect]
     Dosage: 15 MG, UID/QD
     Route: 048
     Dates: start: 20100320, end: 20100409
  9. PREDNISONE [Suspect]
     Dosage: 12.5 MG, UID/QD
     Route: 048
     Dates: start: 20100410, end: 20100422
  10. MYCOPHENOLATE SODIUM [Suspect]
     Indication: RENAL TRANSPLANT
     Dosage: 720 MG, UNKNOWN/D
     Route: 048
     Dates: start: 20091228, end: 20100305
  11. MYCOPHENOLATE SODIUM [Suspect]
     Dosage: 360 MG, UNKNOWN/D
     Route: 048
     Dates: start: 20111004
  12. PREDNISONE [Suspect]
     Dosage: 17.5 MG, UID/QD
     Route: 048
     Dates: start: 20100226, end: 20100319
  13. MYCOPHENOLATE SODIUM [Suspect]
     Dosage: 720 MG, UNKNOWN/D
     Route: 048
     Dates: start: 20100313, end: 20100408

REACTIONS (3)
  - RENAL TUBULAR ATROPHY [None]
  - POLYOMAVIRUS-ASSOCIATED NEPHROPATHY [None]
  - KIDNEY FIBROSIS [None]
